FAERS Safety Report 16070376 (Version 1)
Quarter: 2019Q1

REPORT INFORMATION
  Report Type: Spontaneous
  Country: US (occurrence: US)
  Receive Date: 20190314
  Receipt Date: 20190314
  Transmission Date: 20190418
  Serious: No
  Sender: FDA-Public Use
  Company Number: US-TEVA-2019-US-1014113

PATIENT

DRUGS (1)
  1. ADRUCIL [Suspect]
     Active Substance: FLUOROURACIL
     Dosage: DOSE STRENGTH:  50 MG/ML, 5 GM
     Route: 065

REACTIONS (1)
  - Product storage error [Unknown]
